FAERS Safety Report 23690078 (Version 7)
Quarter: 2025Q1

REPORT INFORMATION
  Report Type: Report from Study
  Country: CA (occurrence: CA)
  Receive Date: 20240401
  Receipt Date: 20250112
  Transmission Date: 20250409
  Serious: Yes (Death, Hospitalization, Other)
  Sender: JOHNSON AND JOHNSON
  Company Number: CA-JNJFOC-20230861642

PATIENT
  Age: 5 Decade
  Sex: Male
  Weight: 66 kg

DRUGS (4)
  1. REMICADE [Suspect]
     Active Substance: INFLIXIMAB
     Indication: Crohn^s disease
     Dosage: DOSE INCREASED?STRENGTH REPORTED AS 5 MG/KG
     Route: 041
     Dates: start: 20220203
  2. REMICADE [Suspect]
     Active Substance: INFLIXIMAB
     Route: 041
  3. REMICADE [Suspect]
     Active Substance: INFLIXIMAB
     Dosage: THE PATIENT WAS DUE FOR REMICADE INFUSION ON 07-NOV-2023. THE INFUSION WAS RESCHEDULED TO 08-NOV-202
     Route: 041
  4. REMICADE [Suspect]
     Active Substance: INFLIXIMAB
     Dosage: LAST INFUSION 27/FEB/2024.
     Route: 041
     Dates: start: 20220203

REACTIONS (7)
  - Death [Fatal]
  - Rectal cancer [Not Recovered/Not Resolved]
  - Hospitalisation [Unknown]
  - Colitis [Unknown]
  - Faecal calprotectin increased [Unknown]
  - Drug level decreased [Unknown]
  - Off label use [Unknown]

NARRATIVE: CASE EVENT DATE: 20230101
